FAERS Safety Report 7412840-5 (Version None)
Quarter: 2011Q2

REPORT INFORMATION
  Report Type: 
  Country: None (occurrence: None)
  Receive Date: 20110413
  Receipt Date: 20110406
  Transmission Date: 20111010
  Serious: Yes (Other)
  Sender: FDA-Public Use
  Company Number: B0711977A

PATIENT
  Age: 42 Year
  Sex: Female

DRUGS (2)
  1. FLUTICASONE PROPIONATE [Suspect]
     Indication: ANALGESIC ASTHMA SYNDROME
     Route: 055
     Dates: end: 20100901
  2. FLUTICASONE PROPIONATE/SALMETEROL [Suspect]
     Indication: ANALGESIC ASTHMA SYNDROME
     Route: 055
     Dates: start: 20100901

REACTIONS (1)
  - OSTEONECROSIS [None]
